FAERS Safety Report 4800053-2 (Version None)
Quarter: 2005Q4

REPORT INFORMATION
  Report Type: 
  Country: None (occurrence: None)
  Receive Date: 20051017
  Receipt Date: 20051006
  Transmission Date: 20060501
  Serious: Yes (Death, Hospitalization)
  Sender: FDA-Public Use
  Company Number: US-JNJFOC-20050306226

PATIENT
  Sex: Male

DRUGS (29)
  1. INFLIXIMAB [Suspect]
     Route: 042
  2. INFLIXIMAB [Suspect]
     Indication: RHEUMATOID ARTHRITIS
     Route: 042
  3. ASPIRIN [Concomitant]
  4. CALCIUM GLUCONATE [Concomitant]
  5. CARDURA [Concomitant]
  6. DIOVAN [Concomitant]
  7. DARVOCET [Concomitant]
  8. DARVOCET [Concomitant]
  9. ELAVIL [Concomitant]
  10. FOLIC ACID [Concomitant]
  11. POTASSIUM [Concomitant]
  12. PREDNISONE [Concomitant]
  13. PURINETHOL [Concomitant]
  14. TEARS PLUS [Concomitant]
  15. TEARS PLUS [Concomitant]
  16. TRAMADOL [Concomitant]
  17. PROTONIX [Concomitant]
     Route: 065
  18. ZOCOR [Concomitant]
  19. ASCORBIC ACID [Concomitant]
  20. VITAMIN D [Concomitant]
  21. VITAMIN E [Concomitant]
  22. SPIRIVA [Concomitant]
     Dosage: DAILY
     Route: 065
  23. ADVAIR DISKUS 100/50 [Concomitant]
     Route: 065
  24. ADVAIR DISKUS 100/50 [Concomitant]
     Dosage: 250/50
     Route: 065
  25. INSULIN [Concomitant]
     Dosage: DAILY
     Route: 065
  26. REMERON [Concomitant]
     Dosage: AT BEDTIME
     Route: 065
  27. MICONAZOLE [Concomitant]
     Dosage: AS NEEDED
     Route: 065
  28. XOPENEX [Concomitant]
     Dosage: NEBULIZER
  29. OXYGEN [Concomitant]

REACTIONS (7)
  - ANAEMIA [None]
  - ATRIAL FIBRILLATION [None]
  - GASTROINTESTINAL HAEMORRHAGE [None]
  - PNEUMONIA [None]
  - PULMONARY EMBOLISM [None]
  - RESPIRATORY FAILURE [None]
  - THROMBOSIS [None]
